FAERS Safety Report 4438808-9 (Version None)
Quarter: 2004Q3

REPORT INFORMATION
  Report Type: 
  Country: None (occurrence: None)
  Receive Date: 20040830
  Receipt Date: 20040820
  Transmission Date: 20050211
  Serious: Yes (Other)
  Sender: FDA-Public Use
  Company Number: STA-AE-04-MTX-378

PATIENT
  Age: 73 Year

DRUGS (2)
  1. METHOTREXATE [Suspect]
  2. PREDNISONE [Suspect]

REACTIONS (1)
  - PULMONARY TUBERCULOSIS [None]
